FAERS Safety Report 4277112-9 (Version None)
Quarter: 2004Q1

REPORT INFORMATION
  Report Type: 
  Country: None (occurrence: None)
  Receive Date: 20040120
  Receipt Date: 20040114
  Transmission Date: 20041129
  Serious: Yes (Death)
  Sender: FDA-Public Use
  Company Number: 163-20785-03110143

PATIENT
  Age: 58 Year
  Sex: Male

DRUGS (1)
  1. THALOMID [Suspect]
     Indication: RECTAL CANCER
     Dosage: 200 MG, DAILY, ORAL
     Route: 048
     Dates: start: 20030718, end: 20030825

REACTIONS (6)
  - HEPATIC FAILURE [None]
  - MALIGNANT NEOPLASM PROGRESSION [None]
  - METASTASES TO LIVER [None]
  - METASTASES TO LUNG [None]
  - RECTAL CANCER METASTATIC [None]
  - RESPIRATORY FAILURE [None]
